FAERS Safety Report 4266116-8 (Version None)
Quarter: 2004Q1

REPORT INFORMATION
  Report Type: 
  Country: None (occurrence: None)
  Receive Date: 20040106
  Receipt Date: 20031227
  Transmission Date: 20041129
  Serious: Yes (Death)
  Sender: FDA-Public Use
  Company Number: 163-20785-03080392

PATIENT
  Age: 73 Year
  Sex: Female
  Weight: 39 kg

DRUGS (5)
  1. THALOMID [Suspect]
     Indication: AMYLOIDOSIS
     Dosage: 100 MG, DAILY, ORAL; 50 MG, DAILY, ORAL
     Route: 048
     Dates: start: 20030714, end: 20030717
  2. THALOMID [Suspect]
     Indication: AMYLOIDOSIS
     Dosage: 100 MG, DAILY, ORAL; 50 MG, DAILY, ORAL
     Route: 048
     Dates: start: 20030714, end: 20030720
  3. THALOMID [Suspect]
     Indication: AMYLOIDOSIS
     Dosage: 100 MG, DAILY, ORAL; 50 MG, DAILY, ORAL
     Route: 048
     Dates: start: 20030722, end: 20030724
  4. THALOMID [Suspect]
     Indication: AMYLOIDOSIS
     Dosage: 100 MG, DAILY, ORAL; 50 MG, DAILY, ORAL
     Route: 048
     Dates: start: 20030811, end: 20030907
  5. DEXAMETHASONE [Suspect]
     Indication: AMYLOIDOSIS
     Dosage: DAILY, ORAL
     Route: 048
     Dates: start: 20030714, end: 20030717

REACTIONS (10)
  - ABDOMINAL PAIN [None]
  - CONSTIPATION [None]
  - DIALYSIS [None]
  - DIARRHOEA [None]
  - FATIGUE [None]
  - HEPATIC FAILURE [None]
  - LOOSE STOOLS [None]
  - NAUSEA [None]
  - RENAL FAILURE [None]
  - VOMITING [None]
